FAERS Safety Report 5099056-5 (Version None)
Quarter: 2006Q3

REPORT INFORMATION
  Report Type: 
  Country: None (occurrence: None)
  Receive Date: 20060731
  Receipt Date: 20060322
  Transmission Date: 20061208
  Serious: Yes (Hospitalization, Other)
  Sender: FDA-Public Use
  Company Number: 223346

PATIENT
  Age: 86 Year
  Sex: Female
  Weight: 81.6 kg

DRUGS (5)
  1. RITUXAN [Suspect]
     Indication: NON-HODGKIN'S LYMPHOMA
  2. TOLTERODINE TARTRATE(TOLTERODINE TARTRATE) [Suspect]
     Indication: HYPERTONIC BLADDER
     Dosage: 4 MG,QD
  3. COZAAR [Concomitant]
  4. METOPROLOL TARTRATE [Concomitant]
  5. INSULIN (INSULIN) [Concomitant]

REACTIONS (1)
  - HYPOTENSION [None]
